FAERS Safety Report 21746111 (Version 2)
Quarter: 2022Q4

REPORT INFORMATION
  Report Type: Report from Study
  Country: JP (occurrence: JP)
  Receive Date: 20221219
  Receipt Date: 20221221
  Transmission Date: 20230113
  Serious: Yes (Hospitalization, Other)
  Sender: FDA-Public Use
  Company Number: JP-002147023-NVSJ2022JP275978

PATIENT
  Age: 23 Year
  Sex: Female
  Weight: 105 kg

DRUGS (5)
  1. MAYZENT [Suspect]
     Active Substance: SIPONIMOD
     Indication: Secondary progressive multiple sclerosis
     Dosage: 0.25 MG
     Route: 048
     Dates: start: 20210302, end: 20210303
  2. MAYZENT [Suspect]
     Active Substance: SIPONIMOD
     Dosage: 0.5 MG
     Route: 048
     Dates: start: 20210304, end: 20210304
  3. MAYZENT [Suspect]
     Active Substance: SIPONIMOD
     Dosage: 0.75 MG
     Route: 048
     Dates: start: 20210305, end: 20210305
  4. MAYZENT [Suspect]
     Active Substance: SIPONIMOD
     Dosage: 0.5 MG
     Route: 048
     Dates: start: 20210306, end: 20210314
  5. MAYZENT [Suspect]
     Active Substance: SIPONIMOD
     Dosage: 1.0 MG
     Route: 048
     Dates: start: 20210315, end: 20210418

REACTIONS (5)
  - Multiple sclerosis [Recovering/Resolving]
  - Lymphopenia [Recovering/Resolving]
  - Concomitant disease aggravated [Recovering/Resolving]
  - IgA nephropathy [Recovering/Resolving]
  - Concomitant disease aggravated [Recovering/Resolving]

NARRATIVE: CASE EVENT DATE: 20210305
